FAERS Safety Report 5955942-2 (Version None)
Quarter: 2008Q4

REPORT INFORMATION
  Report Type: 
  Country: None (occurrence: None)
  Receive Date: 20081112
  Receipt Date: 20081028
  Transmission Date: 20090506
  Serious: Yes (Life-Threatening, Hospitalization)
  Sender: FDA-Public Use
  Company Number: 2008SP002693

PATIENT
  Sex: Male

DRUGS (3)
  1. BROVANA [Suspect]
     Dosage: INHALATION
     Route: 055
  2. CON MEDS [Concomitant]
  3. PREV MEDS [Concomitant]

REACTIONS (1)
  - VENTRICULAR FIBRILLATION [None]
